FAERS Safety Report 22325421 (Version 1)
Quarter: 2023Q2

REPORT INFORMATION
  Report Type: Spontaneous
  Country: US (occurrence: None)
  Receive Date: 20230515
  Receipt Date: 20230515
  Transmission Date: 20230722
  Serious: No
  Sender: FDA-Public Use
  Company Number: None

PATIENT

DRUGS (4)
  1. KEPPRA [Suspect]
     Active Substance: LEVETIRACETAM
  2. ZYRTEC [Suspect]
     Active Substance: CETIRIZINE HYDROCHLORIDE
  3. ONFI [Suspect]
     Active Substance: CLOBAZAM
  4. DEVICE [Suspect]
     Active Substance: DEVICE

REACTIONS (2)
  - Device information output issue [None]
  - Intercepted product dispensing error [None]
